FAERS Safety Report 11237874 (Version 1)
Quarter: 2015Q3

REPORT INFORMATION
  Report Type: Spontaneous
  Country: BR (occurrence: BR)
  Receive Date: 20150703
  Receipt Date: 20150703
  Transmission Date: 20151125
  Serious: Yes (Other)
  Sender: FDA-Public Use
  Company Number: BR-SYMPLMED PHARMACEUTICALS-2015SYM00165

PATIENT
  Age: 48 Year
  Sex: Female

DRUGS (2)
  1. NORETHISTERONE ACETATE [Concomitant]
     Active Substance: NORETHINDRONE ACETATE
     Indication: ENDOMETRIOSIS
     Dosage: UNK
  2. ACEON [Suspect]
     Active Substance: PERINDOPRIL ERBUMINE
     Indication: HYPERTENSION
     Dosage: 10 MG, QD
     Route: 048
     Dates: start: 20150624, end: 20150624

REACTIONS (4)
  - Pruritus generalised [Recovering/Resolving]
  - Nausea [Recovered/Resolved]
  - Dyspnoea [Recovered/Resolved]
  - Generalised erythema [Recovering/Resolving]

NARRATIVE: CASE EVENT DATE: 20150624
